FAERS Safety Report 10099434 (Version 1)
Quarter: 2014Q2

REPORT INFORMATION
  Report Type: Spontaneous
  Country: US (occurrence: US)
  Receive Date: 20140423
  Receipt Date: 20140423
  Transmission Date: 20141212
  Serious: Yes (Other)
  Sender: FDA-Public Use
  Company Number: US-PFIZER INC-2014110950

PATIENT
  Sex: Male

DRUGS (4)
  1. EFFEXOR XR [Suspect]
     Dosage: 150 MG, UNK
  2. EFFEXOR XR [Suspect]
     Dosage: 75 MG, UNK
  3. EFFEXOR XR [Suspect]
     Dosage: 37.5 MG, UNK
  4. EFFEXOR XR [Suspect]
     Dosage: UNK

REACTIONS (3)
  - Hip fracture [Unknown]
  - Constipation [Unknown]
  - Dizziness [Unknown]
